FAERS Safety Report 15318474 (Version 1)
Quarter: 2018Q3

REPORT INFORMATION
  Report Type: Spontaneous
  Country: US (occurrence: US)
  Receive Date: 20180817
  Receipt Date: 20180817
  Transmission Date: 20181010
  Serious: Yes (Hospitalization, Other)
  Sender: FDA-Public Use
  Company Number: None

PATIENT
  Age: 39 Year
  Sex: Female
  Weight: 56.25 kg

DRUGS (1)
  1. DEPO?PROVERA [Suspect]
     Active Substance: MEDROXYPROGESTERONE ACETATE
     Indication: CONTRACEPTION
     Route: 030
     Dates: start: 20060601, end: 20160401

REACTIONS (7)
  - Coma [None]
  - Mass [None]
  - Deafness unilateral [None]
  - Post procedural complication [None]
  - Meningioma [None]
  - Hypoaesthesia [None]
  - Eye disorder [None]

NARRATIVE: CASE EVENT DATE: 20151116
